FAERS Safety Report 11994820 (Version 3)
Quarter: 2025Q3

REPORT INFORMATION
  Report Type: Spontaneous
  Country: US (occurrence: US)
  Receive Date: 20160203
  Receipt Date: 20250819
  Transmission Date: 20251021
  Serious: Yes (Other)
  Sender: ASTELLAS
  Company Number: US-ASTELLAS-2016US003396

PATIENT
  Age: 39 Year
  Sex: Female

DRUGS (4)
  1. TACROLIMUS [Suspect]
     Active Substance: TACROLIMUS
     Indication: Glomerulonephritis proliferative
     Route: 065
     Dates: start: 2006, end: 200705
  2. PREDNISONE [Concomitant]
     Active Substance: PREDNISONE
     Indication: Glomerulonephritis proliferative
     Route: 065
     Dates: start: 2006
  3. PREDNISONE [Concomitant]
     Active Substance: PREDNISONE
     Route: 065
     Dates: end: 2005
  4. MYCOPHENOLATE MOFETIL [Concomitant]
     Active Substance: MYCOPHENOLATE MOFETIL
     Indication: Glomerulonephritis proliferative
     Route: 065
     Dates: start: 2005

REACTIONS (2)
  - Cytomegalovirus colitis [Unknown]
  - Off label use [Unknown]

NARRATIVE: CASE EVENT DATE: 20060101
